FAERS Safety Report 11124884 (Version 1)
Quarter: 2015Q2

REPORT INFORMATION
  Report Type: Report from Study
  Country: FR (occurrence: FR)
  Receive Date: 20150520
  Receipt Date: 20150520
  Transmission Date: 20150821
  Serious: Yes (Other)
  Sender: FDA-Public Use
  Company Number: FR-MYLANLABS-2015M1011389

PATIENT

DRUGS (4)
  1. M?THOTREXATE [Suspect]
     Active Substance: METHOTREXATE
     Dosage: 30 MG, QW
     Route: 058
     Dates: start: 20140520, end: 20141124
  2. M?THOTREXATE [Suspect]
     Active Substance: METHOTREXATE
     Indication: PSORIASIS
     Dosage: 15 MG, QW
     Route: 058
     Dates: start: 20131118, end: 20140107
  3. M?THOTREXATE [Suspect]
     Active Substance: METHOTREXATE
     Dosage: 25 MG, QW
     Route: 058
     Dates: start: 20141124
  4. M?THOTREXATE [Suspect]
     Active Substance: METHOTREXATE
     Dosage: 25 MG, QW
     Route: 058
     Dates: start: 20140107, end: 20140520

REACTIONS (2)
  - Drug ineffective [Recovering/Resolving]
  - Tracheitis [Recovered/Resolved]

NARRATIVE: CASE EVENT DATE: 20150422
